FAERS Safety Report 7669765-X (Version None)
Quarter: 2011Q3

REPORT INFORMATION
  Report Type: 
  Country: None (occurrence: None)
  Receive Date: 20110803
  Receipt Date: 20110719
  Transmission Date: 20111222
  Serious: Yes (Life-Threatening, Hospitalization, Other)
  Sender: FDA-Public Use
  Company Number: 2011MA009050

PATIENT
  Age: 11 Year
  Sex: Female

DRUGS (8)
  1. CITALOPRAM HYDROBROMIDE [Suspect]
     Indication: DEPRESSION
  2. ESCITALOPRAM OXALATE [Concomitant]
  3. TRAMADOL HCL [Suspect]
  4. OMEPRAZOLE [Concomitant]
  5. ARIPIPRAZOLE [Concomitant]
  6. ACETAMINOPHEN [Concomitant]
  7. MONTELUKAST SODIUM [Concomitant]
  8. IBUPROFEN [Concomitant]

REACTIONS (15)
  - RESPIRATORY FAILURE [None]
  - CEREBELLAR INFARCTION [None]
  - VISION BLURRED [None]
  - PULSE ABSENT [None]
  - FEELING HOT [None]
  - MASTOID EFFUSION [None]
  - CARDIAC ARREST [None]
  - SELF-MEDICATION [None]
  - LOSS OF CONSCIOUSNESS [None]
  - SINUS DISORDER [None]
  - HEADACHE [None]
  - INTRACRANIAL VENOUS SINUS THROMBOSIS [None]
  - SUICIDE ATTEMPT [None]
  - MULTIPLE DRUG OVERDOSE INTENTIONAL [None]
  - FALL [None]
